FAERS Safety Report 6895853-1 (Version None)
Quarter: 2010Q3

REPORT INFORMATION
  Report Type: 
  Country: None (occurrence: None)
  Receive Date: 20100802
  Receipt Date: 20100721
  Transmission Date: 20110219
  Serious: Yes (Other)
  Sender: FDA-Public Use
  Company Number: US-PFIZER INC-2010080729

PATIENT
  Sex: Male
  Weight: 83 kg

DRUGS (5)
  1. GEODON [Suspect]
     Dosage: 80 MG, 3X/DAY
     Route: 048
     Dates: start: 20050101
  2. GEODON [Suspect]
     Dosage: 320 MG, UNK
     Route: 048
     Dates: start: 20050101
  3. VIAGRA [Suspect]
  4. RISPERIDONE [Concomitant]
  5. KLONOPIN [Concomitant]

REACTIONS (10)
  - ASTHENIA [None]
  - BRAIN INJURY [None]
  - CARDIAC DISORDER [None]
  - DEHYDRATION [None]
  - DIARRHOEA [None]
  - DRUG INEFFECTIVE [None]
  - DYSGRAPHIA [None]
  - ERECTILE DYSFUNCTION [None]
  - HAEMOCHROMATOSIS [None]
  - INSOMNIA [None]
